FAERS Safety Report 10208401 (Version 2)
Quarter: 2014Q3

REPORT INFORMATION
  Report Type: Other
  Country: JP (occurrence: JP)
  Receive Date: 20140530
  Receipt Date: 20140820
  Transmission Date: 20150326
  Serious: Yes (Other)
  Sender: FDA-Public Use
  Company Number: JP-BRISTOL-MYERS SQUIBB COMPANY-20868071

PATIENT
  Age: 64 Year
  Sex: Male

DRUGS (1)
  1. ERBITUX [Suspect]
     Active Substance: CETUXIMAB
     Indication: COLON CANCER METASTATIC
     Route: 041

REACTIONS (3)
  - Emotional disorder [Recovered/Resolved]
  - Dermatitis acneiform [Recovering/Resolving]
  - Social problem [Recovered/Resolved]
